FAERS Safety Report 20952416 (Version 1)
Quarter: 2022Q2

REPORT INFORMATION
  Report Type: Spontaneous
  Country: DE (occurrence: DE)
  Receive Date: 20220613
  Receipt Date: 20220613
  Transmission Date: 20220721
  Serious: Yes (Hospitalization)
  Sender: FDA-Public Use
  Company Number: DE-002147023-NVSC2022DE123257

PATIENT
  Age: 80 Year
  Sex: Female

DRUGS (9)
  1. TORSEMIDE [Suspect]
     Active Substance: TORSEMIDE
     Indication: Product used for unknown indication
     Dosage: UNK
  2. SPIRONOLACTONE [Suspect]
     Active Substance: SPIRONOLACTONE
     Indication: Product used for unknown indication
     Dosage: UNK
  3. BISOPROLOL [Suspect]
     Active Substance: BISOPROLOL
     Indication: Product used for unknown indication
     Dosage: UNK
  4. MOXONIDINE [Suspect]
     Active Substance: MOXONIDINE
     Indication: Product used for unknown indication
     Dosage: UNK
  5. XARELTO [Suspect]
     Active Substance: RIVAROXABAN
     Indication: Product used for unknown indication
     Dosage: UNK
  6. LERCANIDIPINE HYDROCHLORIDE [Suspect]
     Active Substance: LERCANIDIPINE HYDROCHLORIDE
     Indication: Product used for unknown indication
     Dosage: UNK
  7. DIGITOXIN [Suspect]
     Active Substance: DIGITOXIN
     Indication: Product used for unknown indication
     Dosage: UNK
  8. LEVOTHYROXINE [Suspect]
     Active Substance: LEVOTHYROXINE
     Indication: Product used for unknown indication
     Dosage: UNK
  9. ENTRESTO [Suspect]
     Active Substance: SACUBITRIL\VALSARTAN
     Indication: Product used for unknown indication
     Dosage: 4 DOSAGE FORM, QD, (2 DOSAGE FORM, BID)
     Dates: start: 202203

REACTIONS (2)
  - Hypertension [Unknown]
  - Heart rate increased [Unknown]

NARRATIVE: CASE EVENT DATE: 20220401
